FAERS Safety Report 16393265 (Version 1)
Quarter: 2019Q2

REPORT INFORMATION
  Report Type: Spontaneous
  Country: US (occurrence: US)
  Receive Date: 20190430
  Receipt Date: 20190430
  Transmission Date: 20190711
  Serious: No
  Sender: FDA-Public Use
  Company Number: None

PATIENT
  Age: 67 Year
  Sex: Male

DRUGS (1)
  1. ENBREL [Suspect]
     Active Substance: ETANERCEPT
     Dates: start: 201810

REACTIONS (3)
  - Therapy cessation [None]
  - Psoriasis [None]
  - White blood cell count decreased [None]

NARRATIVE: CASE EVENT DATE: 20190401
